FAERS Safety Report 18767310 (Version 3)
Quarter: 2022Q3

REPORT INFORMATION
  Report Type: Report from Study
  Country: CA (occurrence: CA)
  Receive Date: 20210121
  Receipt Date: 20220712
  Transmission Date: 20221027
  Serious: Yes (Hospitalization)
  Sender: FDA-Public Use
  Company Number: CA-GLAXOSMITHKLINE-CA2021AMR010296

PATIENT

DRUGS (1)
  1. MEPOLIZUMAB [Suspect]
     Active Substance: MEPOLIZUMAB
     Indication: Asthma
     Dosage: 100 MG, Z EVERY 4 WEEKS
     Route: 058
     Dates: start: 20160929

REACTIONS (7)
  - Chest discomfort [Unknown]
  - Oropharyngeal pain [Unknown]
  - Exposure to SARS-CoV-2 [Unknown]
  - Asthma [Unknown]
  - Sputum discoloured [Unknown]
  - Productive cough [Unknown]
  - Rales [Unknown]
